FAERS Safety Report 9805476 (Version 1)
Quarter: 2014Q1

REPORT INFORMATION
  Report Type: Spontaneous
  Country: US (occurrence: None)
  Receive Date: 20140108
  Receipt Date: 20140108
  Transmission Date: 20141002
  Serious: No
  Sender: FDA-Public Use
  Company Number: None

PATIENT
  Age: 56 Year
  Sex: Female
  Weight: 56.7 kg

DRUGS (22)
  1. TIROSINT [Suspect]
     Indication: AUTOIMMUNE THYROIDITIS
     Dosage: 1 PILL
     Dates: start: 20131227, end: 20140105
  2. TIROSINT [Suspect]
     Indication: HYPOTHYROIDISM
     Dosage: 1 PILL
     Dates: start: 20131227, end: 20140105
  3. LISINOPRIL [Concomitant]
  4. PREVACID [Concomitant]
  5. EXALGO [Concomitant]
  6. NORCO [Concomitant]
  7. DIAZEPAM [Concomitant]
  8. GABAPENTIN [Concomitant]
  9. CELEBREX [Concomitant]
  10. VOLTEREN GEL [Concomitant]
  11. MURO [Concomitant]
  12. LIQUID TEARS [Concomitant]
  13. COLACE [Concomitant]
  14. MIRALAX [Concomitant]
  15. PREP H [Concomitant]
  16. ALBUTEROL [Concomitant]
  17. SHELLFISH FREE GLUCOSAMINE [Concomitant]
  18. CALCIUM [Concomitant]
  19. VITAMIN D [Concomitant]
  20. OMEGA 3/6/9 [Concomitant]
  21. ESTRADIOL [Concomitant]
  22. FLUOCINOLONE [Concomitant]

REACTIONS (4)
  - Hot flush [None]
  - Hyperhidrosis [None]
  - Insomnia [None]
  - Product substitution issue [None]
